FAERS Safety Report 5371620-5 (Version None)
Quarter: 2007Q2

REPORT INFORMATION
  Report Type: 
  Country: None (occurrence: None)
  Receive Date: 20070627
  Receipt Date: 20070619
  Transmission Date: 20071010
  Serious: Yes (Other)
  Sender: FDA-Public Use
  Company Number: PHBS2007IT08693

PATIENT
  Age: 19 Year
  Sex: Male

DRUGS (4)
  1. OXCARBAZEPINE [Suspect]
     Indication: PARTIAL SEIZURES
  2. ACTH [Suspect]
     Indication: PARTIAL SEIZURES
     Dosage: 0.01 MG/KG/DAY
  3. PRIMIDONE [Suspect]
     Indication: PARTIAL SEIZURES
  4. VALPROATE SODIUM [Suspect]
     Indication: PARTIAL SEIZURES

REACTIONS (8)
  - DRUG INEFFECTIVE [None]
  - DRUG INTERACTION [None]
  - DRUG LEVEL DECREASED [None]
  - EPILEPSY [None]
  - FLUID RETENTION [None]
  - GLYCOSURIA [None]
  - HYPERGLYCAEMIA [None]
  - HYPOKALAEMIA [None]
